FAERS Safety Report 6966211-6 (Version None)
Quarter: 2010Q3

REPORT INFORMATION
  Report Type: 
  Country: None (occurrence: None)
  Receive Date: 20100903
  Receipt Date: 20100824
  Transmission Date: 20110219
  Serious: Yes (Other)
  Sender: FDA-Public Use
  Company Number: US-ABBOTT-10P-163-0666052-00

PATIENT
  Sex: Female
  Weight: 66.284 kg

DRUGS (10)
  1. HUMIRA [Suspect]
     Indication: RHEUMATOID ARTHRITIS
     Dates: start: 20071001
  2. IMURAN [Concomitant]
     Indication: RHEUMATOID ARTHRITIS
  3. XANAX [Concomitant]
     Indication: ANXIETY
  4. LANTUS [Concomitant]
     Indication: DIABETES MELLITUS
  5. HUMALOG [Concomitant]
     Indication: DIABETES MELLITUS
  6. FUROSEMIDE [Concomitant]
     Indication: PRODUCT USED FOR UNKNOWN INDICATION
     Dosage: EVERY OTHER DAY
  7. SYNTHROID [Concomitant]
     Indication: HYPOTHYROIDISM
  8. FOLIC ACID [Concomitant]
     Indication: VITAMIN SUPPLEMENTATION
  9. CITALOPRAM HYDROBROMIDE [Concomitant]
     Indication: PRODUCT USED FOR UNKNOWN INDICATION
  10. VITAMIN B-12 [Concomitant]
     Indication: PRODUCT USED FOR UNKNOWN INDICATION
     Route: 050

REACTIONS (20)
  - ARTHRITIS [None]
  - BASAL CELL CARCINOMA [None]
  - BLOOD CREATININE INCREASED [None]
  - BLOOD GLUCOSE INCREASED [None]
  - BLOOD SODIUM DECREASED [None]
  - CARBON DIOXIDE DECREASED [None]
  - DERMAL CYST [None]
  - HAEMATOCRIT DECREASED [None]
  - HAEMOGLOBIN DECREASED [None]
  - HAEMORRHAGIC CYST [None]
  - JOINT CREPITATION [None]
  - MEAN CELL VOLUME INCREASED [None]
  - NEOPLASM SKIN [None]
  - PAIN [None]
  - RASH [None]
  - RED BLOOD CELL COUNT DECREASED [None]
  - SKIN CANCER [None]
  - SKIN LESION [None]
  - SQUAMOUS CELL CARCINOMA [None]
  - VAGINAL CYST [None]
